FAERS Safety Report 25361758 (Version 4)
Quarter: 2025Q4

REPORT INFORMATION
  Report Type: Spontaneous
  Country: US (occurrence: US)
  Receive Date: 20250527
  Receipt Date: 20251023
  Transmission Date: 20260117
  Serious: No
  Sender: BRISTOL-MYERS SQUIBB COMPANY
  Company Number: US-BRISTOL-MYERS SQUIBB COMPANY-2025-075810

PATIENT
  Age: 68 Year
  Sex: Female

DRUGS (2)
  1. POMALYST [Suspect]
     Active Substance: POMALIDOMIDE
     Indication: Plasma cell myeloma
  2. POMALYST [Suspect]
     Active Substance: POMALIDOMIDE

REACTIONS (7)
  - Tooth discolouration [Unknown]
  - Pain in jaw [Unknown]
  - Hyperaesthesia teeth [Unknown]
  - Toothache [Unknown]
  - Condition aggravated [Unknown]
  - Product dose omission issue [Unknown]
  - Arthralgia [Unknown]
